FAERS Safety Report 13961581 (Version 1)
Quarter: 2017Q3

REPORT INFORMATION
  Report Type: Report from Study
  Country: JP (occurrence: JP)
  Receive Date: 20170912
  Receipt Date: 20170912
  Transmission Date: 20171128
  Serious: Yes (Death, Hospitalization)
  Sender: FDA-Public Use
  Company Number: PHHO2004JP04480

PATIENT
  Age: 71 Year
  Sex: Male

DRUGS (8)
  1. LOCHOL [Suspect]
     Active Substance: FLUVASTATIN SODIUM
     Indication: HYPERCHOLESTEROLAEMIA
     Dosage: 20 MG, QD
     Route: 048
     Dates: start: 20000922
  2. LOCHOL [Suspect]
     Active Substance: FLUVASTATIN SODIUM
     Route: 048
     Dates: start: 20000922, end: 20040404
  3. ISOSORBIDE DINITRATE. [Concomitant]
     Active Substance: ISOSORBIDE DINITRATE
     Dosage: 40 MG, QD
     Route: 048
     Dates: start: 19990125
  4. NORVASC [Suspect]
     Active Substance: AMLODIPINE BESYLATE
     Indication: HYPERTENSION
     Dosage: 5 MG, QD
     Route: 048
     Dates: start: 19990125
  5. NITROGLYCERIN. [Suspect]
     Active Substance: NITROGLYCERIN
     Indication: PRODUCT USED FOR UNKNOWN INDICATION
     Dosage: 27 MG, QD
     Route: 048
     Dates: start: 19990126
  6. DOMENAN (OZAGREL HYDROCHLORIDE) [Suspect]
     Active Substance: OZAGREL HYDROCHLORIDE
     Indication: ASTHMA
     Dosage: 400 MG, QD
     Route: 048
     Dates: start: 19990125
  7. THEOPHYLLINE [Suspect]
     Active Substance: THEOPHYLLINE ANHYDROUS
     Indication: ASTHMA
     Dosage: 200 MG, QD
     Route: 048
     Dates: start: 19990125
  8. HOKUNALIN [Concomitant]
     Active Substance: TULOBUTEROL
     Indication: ASTHMA

REACTIONS (3)
  - Pulmonary tuberculosis [Fatal]
  - Dyspnoea [Fatal]
  - Productive cough [Fatal]

NARRATIVE: CASE EVENT DATE: 20040210
